FAERS Safety Report 5192546-6 (Version None)
Quarter: 2006Q4

REPORT INFORMATION
  Report Type: 
  Country: None (occurrence: None)
  Receive Date: 20061220
  Receipt Date: 20061212
  Transmission Date: 20070319
  Serious: Yes (Other)
  Sender: FDA-Public Use
  Company Number: CHNY2006CA03401

PATIENT
  Age: 13 Year
  Sex: Female

DRUGS (3)
  1. TRANSDERM VOYAGER [Suspect]
     Indication: NAUSEA
     Dosage: 1.5 MG TRANSDERMAL
     Route: 062
     Dates: start: 20061201
  2. ZANTAC [Concomitant]
  3. NEUPOGEN [Concomitant]

REACTIONS (3)
  - EYE SWELLING [None]
  - SWELLING FACE [None]
  - URTICARIA GENERALISED [None]
